FAERS Safety Report 20691910 (Version 2)
Quarter: 2022Q2

REPORT INFORMATION
  Report Type: Spontaneous
  Country: CH (occurrence: CH)
  Receive Date: 20220408
  Receipt Date: 20220428
  Transmission Date: 20220721
  Serious: Yes (Other)
  Sender: FDA-Public Use
  Company Number: CH-GILEAD-2022-0576624

PATIENT
  Sex: Female

DRUGS (2)
  1. TRODELVY [Suspect]
     Active Substance: SACITUZUMAB GOVITECAN-HZIY
     Indication: Triple negative breast cancer
     Dosage: 8 MG/KG (300 MG) IV D1-8 / 21 DAYS
     Route: 042
     Dates: start: 202112
  2. TRODELVY [Suspect]
     Active Substance: SACITUZUMAB GOVITECAN-HZIY
     Dosage: 10 MG/KG (360 MG) IV D1-8 / 21 DAYS SINCE CYCLE 5
     Route: 042

REACTIONS (4)
  - Metastases to bone [Unknown]
  - Off label use [Recovered/Resolved]
  - Asthenia [Unknown]
  - Psychomotor retardation [Unknown]
